FAERS Safety Report 4948300-0 (Version None)
Quarter: 2006Q1

REPORT INFORMATION
  Report Type: 
  Country: None (occurrence: None)
  Receive Date: 20060127
  Receipt Date: 20050214
  Transmission Date: 20060701
  Serious: Yes (Hospitalization, Other)
  Sender: FDA-Public Use
  Company Number: 05-02-0209

PATIENT
  Age: 56 Year
  Sex: Female
  Weight: 78.4723 kg

DRUGS (9)
  1. CLOZAPINE [Suspect]
     Indication: SCHIZOPHRENIA
     Dosage: 100MG, QHS, ORAL
     Route: 048
     Dates: start: 20050210, end: 20050210
  2. STELAZINE [Concomitant]
  3. THORAZINE [Concomitant]
  4. TRAZODONE HCL [Concomitant]
  5. TOPAMAX [Concomitant]
  6. TRILEPTAL [Concomitant]
  7. PROTONIX [Concomitant]
  8. AMBIEN [Concomitant]
  9. COGENTIN (BENZTROPINE MESILATE) [Concomitant]

REACTIONS (1)
  - CONVULSION [None]
